FAERS Safety Report 8414538-3 (Version None)
Quarter: 2012Q2

REPORT INFORMATION
  Report Type: 
  Country: None (occurrence: None)
  Receive Date: 20120605
  Receipt Date: 20120601
  Transmission Date: 20120825
  Serious: Yes (Life-Threatening, Hospitalization)
  Sender: FDA-Public Use
  Company Number: JP-B.I. PHARMACEUTICALS,INC./RIDGEFIELD-2012-BP-03290NB

PATIENT
  Sex: Female

DRUGS (8)
  1. TORSEMIDE [Concomitant]
     Indication: CARDIAC FAILURE
     Dosage: 4 MG
     Route: 048
     Dates: start: 20051128
  2. ATELEC [Concomitant]
     Indication: HYPERTENSION
     Dosage: 10 MG
     Route: 048
     Dates: start: 20030128
  3. LOSARTAN POTASSIUM AND HYDROCHLOROTHIAZIDE [Concomitant]
     Indication: HYPERTENSION
     Route: 048
     Dates: start: 20030128
  4. EPADEL S [Concomitant]
     Indication: HYPERLIPIDAEMIA
     Dosage: 1200 MG
     Route: 048
     Dates: start: 20100601
  5. CIBENOL [Concomitant]
     Indication: ATRIAL FIBRILLATION
     Dosage: 200 MG
     Route: 048
     Dates: start: 20051017
  6. ALFAROL [Concomitant]
     Indication: OSTEOPOROSIS
     Dosage: 0.5 MCG
     Route: 048
     Dates: start: 19981021
  7. OMEPRAZOLE [Concomitant]
     Indication: OESOPHAGITIS
     Dosage: 10 MG
     Route: 048
     Dates: start: 20050415
  8. TRAZENTA [Suspect]
     Indication: TYPE 2 DIABETES MELLITUS
     Dosage: 2.5 MG
     Route: 048
     Dates: start: 20120210, end: 20120213

REACTIONS (2)
  - HYPOGLYCAEMIA [None]
  - ALTERED STATE OF CONSCIOUSNESS [None]
